FAERS Safety Report 8322839-2 (Version None)
Quarter: 2012Q2

REPORT INFORMATION
  Report Type: 
  Country: None (occurrence: None)
  Receive Date: 20120430
  Receipt Date: 20120426
  Transmission Date: 20120825
  Serious: Yes (Death)
  Sender: FDA-Public Use
  Company Number: PHHY2012ES035656

PATIENT
  Age: 67 Year
  Sex: Female

DRUGS (3)
  1. PREDNISONE [Suspect]
     Dosage: 5 MG, QD
  2. ADALIMUMAB [Suspect]
  3. METHOTREXATE [Suspect]
     Dosage: 20 MG, QW

REACTIONS (7)
  - TACHYPNOEA [None]
  - CYANOSIS [None]
  - TACHYCARDIA [None]
  - PNEUMONITIS [None]
  - COUGH [None]
  - FEELING COLD [None]
  - PYREXIA [None]
